FAERS Safety Report 4557127-3 (Version None)
Quarter: 2005Q1

REPORT INFORMATION
  Report Type: 
  Country: None (occurrence: None)
  Receive Date: 20050119
  Receipt Date: 20050119
  Transmission Date: 20050727
  Serious: Yes (Hospitalization)
  Sender: FDA-Public Use
  Company Number: None

PATIENT
  Age: 56 Year
  Sex: Male
  Weight: 101.1521 kg

DRUGS (7)
  1. RITUXIMAB [Suspect]
     Indication: CHRONIC LYMPHOCYTIC LEUKAEMIA
     Dosage: 375 MG M2   3XWKLYX 4 WKS  INTRAVENOU
     Route: 042
     Dates: start: 20041214, end: 20050107
  2. RITUXIMAB [Suspect]
     Indication: LYMPHOCYTIC LYMPHOMA
     Dosage: 375 MG M2   3XWKLYX 4 WKS  INTRAVENOU
     Route: 042
     Dates: start: 20041214, end: 20050107
  3. ETANERCEPT [Suspect]
     Indication: CHRONIC LYMPHOCYTIC LEUKAEMIA
     Dosage: 25 MG   TWICE WEEKLY   SUBCUTANEO
     Route: 058
     Dates: start: 20041208, end: 20050106
  4. ETANERCEPT [Suspect]
     Indication: LYMPHOCYTIC LYMPHOMA
     Dosage: 25 MG   TWICE WEEKLY   SUBCUTANEO
     Route: 058
     Dates: start: 20041208, end: 20050106
  5. BACTRIM DS [Concomitant]
  6. ACYCLOVIR [Concomitant]
  7. LEVOTHYROXINE [Concomitant]

REACTIONS (8)
  - ANAL FISSURE [None]
  - CONDITION AGGRAVATED [None]
  - DISEASE RECURRENCE [None]
  - FEBRILE NEUTROPENIA [None]
  - GINGIVAL PAIN [None]
  - ORAL INFECTION [None]
  - PHARYNGOLARYNGEAL PAIN [None]
  - THROMBOCYTOPENIA [None]
